FAERS Safety Report 12994200 (Version 2)
Quarter: 2017Q3

REPORT INFORMATION
  Report Type: Spontaneous
  Country: IT (occurrence: IT)
  Receive Date: 20161202
  Receipt Date: 20170725
  Transmission Date: 20171127
  Serious: Yes (Other)
  Sender: FDA-Public Use
  Company Number: IT-PFIZER INC-2016560077

PATIENT
  Age: 25 Year
  Sex: Female

DRUGS (2)
  1. TAZOCIN [Suspect]
     Active Substance: PIPERACILLIN SODIUM\TAZOBACTAM SODIUM
     Indication: PNEUMONITIS
     Dosage: 4.5 G, DAILY
     Route: 042
     Dates: start: 20161123, end: 20161128
  2. KLACID /00984601/ [Suspect]
     Active Substance: CLARITHROMYCIN
     Indication: PNEUMONITIS
     Dosage: 500 MG, DAILY
     Route: 042
     Dates: start: 20161125, end: 20161128

REACTIONS (2)
  - Hyperamylasaemia [Unknown]
  - Hyperlipasaemia [Unknown]

NARRATIVE: CASE EVENT DATE: 20161128
